FAERS Safety Report 7148342-3 (Version None)
Quarter: 2010Q4

REPORT INFORMATION
  Report Type: 
  Country: None (occurrence: None)
  Receive Date: 20101209
  Receipt Date: 20101130
  Transmission Date: 20110411
  Serious: Yes (Hospitalization, Other)
  Sender: FDA-Public Use
  Company Number: US-NOVOPROD-319307

PATIENT
  Sex: Female

DRUGS (5)
  1. NOVOLIN 70/30 [Suspect]
     Indication: TYPE 2 DIABETES MELLITUS
     Dosage: 45 IU, QD
     Route: 058
     Dates: start: 20100510
  2. NOVOLIN N [Suspect]
     Indication: TYPE 2 DIABETES MELLITUS
     Dosage: UNKNOWN
     Dates: start: 20091101, end: 20100509
  3. ZESTRIL [Concomitant]
     Indication: HYPERTENSION
     Dosage: 20 MG, BID
     Route: 048
  4. PREDNISONE [Concomitant]
     Indication: ASTHMA
     Dosage: 10 MG, BID
     Route: 048
  5. BENADRYL [Concomitant]
     Indication: DRUG HYPERSENSITIVITY
     Dosage: 100 MG, QD
     Route: 048

REACTIONS (11)
  - BLOOD GLUCOSE INCREASED [None]
  - BLOOD POTASSIUM DECREASED [None]
  - CARDIAC FAILURE CONGESTIVE [None]
  - CARDIAC PACEMAKER INSERTION [None]
  - FATIGUE [None]
  - FLUID RETENTION [None]
  - HEART RATE INCREASED [None]
  - HYPERHIDROSIS [None]
  - OEDEMA PERIPHERAL [None]
  - SUDDEN ONSET OF SLEEP [None]
  - VISUAL IMPAIRMENT [None]
